FAERS Safety Report 5806329-4 (Version None)
Quarter: 2008Q3

REPORT INFORMATION
  Report Type: 
  Country: None (occurrence: None)
  Receive Date: 20080702
  Receipt Date: 20070601
  Transmission Date: 20090109
  Serious: No
  Sender: FDA-Public Use
  Company Number: 2007-BP-05231BP

PATIENT
  Age: 34 Year
  Sex: Male

DRUGS (5)
  1. MIRAPEX [Suspect]
     Indication: RESTLESS LEGS SYNDROME
     Dosage: 0.25 MG (0.25 MG,1 IN 1 D),PO
     Route: 048
     Dates: start: 20070117, end: 20070202
  2. CELEXA [Concomitant]
  3. WELLBUTRIN SR [Concomitant]
  4. SEROQUEL [Concomitant]
  5. SERAX [Concomitant]

REACTIONS (1)
  - TINNITUS [None]
